FAERS Safety Report 8510149-X (Version None)
Quarter: 2012Q3

REPORT INFORMATION
  Report Type: 
  Country: None (occurrence: None)
  Receive Date: 20120713
  Receipt Date: 20120706
  Transmission Date: 20120928
  Serious: No
  Sender: FDA-Public Use
  Company Number: US-B.I. PHARMACEUTICALS,INC./RIDGEFIELD-2012-BP-15219BP

PATIENT
  Sex: Male

DRUGS (2)
  1. INSULIN [Concomitant]
  2. TRADJENTA [Suspect]
     Dosage: 5 MG
     Route: 048
     Dates: start: 20120627

REACTIONS (3)
  - NAUSEA [None]
  - DIZZINESS [None]
  - VOMITING [None]
